FAERS Safety Report 9257284 (Version 1)
Quarter: 2013Q2

REPORT INFORMATION
  Report Type: Spontaneous
  Country: US (occurrence: None)
  Receive Date: 20130424
  Receipt Date: 20130424
  Transmission Date: 20140414
  Serious: Yes (Other)
  Sender: FDA-Public Use
  Company Number: None

PATIENT
  Age: 58 Year
  Sex: Female

DRUGS (2)
  1. PEGASYS [Suspect]
     Indication: HEPATITIS C
     Route: 058
     Dates: start: 20130222, end: 20130408
  2. RIBAVIRIN [Suspect]
     Indication: HEPATITIS C
     Route: 048
     Dates: start: 20130222, end: 20130408

REACTIONS (6)
  - Nausea [None]
  - Dizziness [None]
  - Chills [None]
  - Dyspnoea [None]
  - Haemoglobin decreased [None]
  - White blood cell count decreased [None]
